FAERS Safety Report 8319457-9 (Version None)
Quarter: 2012Q2

REPORT INFORMATION
  Report Type: 
  Country: None (occurrence: None)
  Receive Date: 20120427
  Receipt Date: 20120418
  Transmission Date: 20120825
  Serious: Yes (Hospitalization)
  Sender: FDA-Public Use
  Company Number: US-ELI_LILLY_AND_COMPANY-US201109007444

PATIENT
  Sex: Female

DRUGS (3)
  1. FORTEO [Suspect]
     Dosage: 20 UG, QD
  2. FORTEO [Suspect]
     Indication: OSTEOPOROSIS
     Dosage: 20 UG, QD
  3. ANALGESICS [Concomitant]

REACTIONS (7)
  - CONTUSION [None]
  - DIZZINESS [None]
  - HAEMATOMA [None]
  - HOSPITALISATION [None]
  - MALAISE [None]
  - INJURY [None]
  - FEELING ABNORMAL [None]
